FAERS Safety Report 24593002 (Version 1)
Quarter: 2024Q4

REPORT INFORMATION
  Report Type: Spontaneous
  Country: KR (occurrence: KR)
  Receive Date: 20241108
  Receipt Date: 20241108
  Transmission Date: 20250115
  Serious: Yes (Other)
  Sender: JOHNSON AND JOHNSON
  Company Number: KR-JNJFOC-20241105456

PATIENT
  Sex: Male

DRUGS (1)
  1. SIMPONI [Suspect]
     Active Substance: GOLIMUMAB
     Indication: Ankylosing spondylitis
     Dosage: LAST USED DATE: 05-SEP-2023
     Route: 058

REACTIONS (3)
  - Turbinoplasty [Recovered/Resolved]
  - Nasal septum deviation [Recovered/Resolved]
  - Epistaxis [Recovered/Resolved]
